FAERS Safety Report 12916415 (Version 1)
Quarter: 2016Q4

REPORT INFORMATION
  Report Type: Report from Study
  Country: US (occurrence: US)
  Receive Date: 20161107
  Receipt Date: 20161107
  Transmission Date: 20170207
  Serious: Yes (Hospitalization)
  Sender: FDA-Public Use
  Company Number: US-ROCHE-1850586

PATIENT
  Age: 69 Year
  Sex: Male
  Weight: 99.2 kg

DRUGS (8)
  1. SILDENAFIL. [Concomitant]
     Active Substance: SILDENAFIL
     Indication: PULMONARY HYPERTENSION
     Dosage: TAKES 3 PER DAY; TAKING FOR ABOUT A YEAR ;ONGOING: YES
     Route: 048
  2. CLOPIDOGREL [Concomitant]
     Active Substance: CLOPIDOGREL BISULFATE
     Dosage: TAKING FOR ABOUT 6 MONTHS ;ONGOING: YES
     Route: 048
  3. FUROSEMIDE. [Concomitant]
     Active Substance: FUROSEMIDE
     Dosage: TAKING FOR ABOUT A MONTH ;ONGOING: YES
     Route: 048
     Dates: start: 2016
  4. CARTIA XT [Concomitant]
     Active Substance: DILTIAZEM HYDROCHLORIDE
     Indication: PULMONARY HYPERTENSION
     Dosage: TAKING FOR 6 MONTHS ;ONGOING: YES
     Route: 048
  5. ESBRIET [Suspect]
     Active Substance: PIRFENIDONE
     Indication: IDIOPATHIC PULMONARY FIBROSIS
     Dosage: 1 CAPSULE 3 TIMES PER DAY ;ONGOING: NO
     Route: 048
     Dates: start: 20161024, end: 20161026
  6. LOSARTAN. [Concomitant]
     Active Substance: LOSARTAN
     Dosage: TAKING FOR 6 MONTHS OR MORE ;ONGOING: YES
     Route: 048
     Dates: start: 2016
  7. PRAVASTATIN SODIUM. [Concomitant]
     Active Substance: PRAVASTATIN SODIUM
     Indication: BLOOD PRESSURE MEASUREMENT
     Dosage: TAKING FOR ABOUT A YEAR ;ONGOING: YES
     Route: 048
  8. ELIQUIS [Concomitant]
     Active Substance: APIXABAN
     Indication: THROMBOSIS
     Dosage: ONGOING:YES
     Route: 048
     Dates: start: 20161026

REACTIONS (3)
  - Emotional distress [Recovered/Resolved]
  - Chest discomfort [Recovered/Resolved]
  - Dyspepsia [Recovered/Resolved]

NARRATIVE: CASE EVENT DATE: 20161026
